FAERS Safety Report 9827302 (Version 1)
Quarter: 2014Q1

REPORT INFORMATION
  Report Type: Spontaneous
  Country: GB (occurrence: GB)
  Receive Date: 20140117
  Receipt Date: 20140117
  Transmission Date: 20141002
  Serious: Yes (Death, Other)
  Sender: FDA-Public Use
  Company Number: GB-PFIZER INC-2014012403

PATIENT
  Age: 49 Year
  Sex: Male

DRUGS (1)
  1. SILDENAFIL CITRATE [Suspect]
     Indication: ERECTILE DYSFUNCTION
     Dosage: 50 MG, DAILY
     Route: 048
     Dates: start: 20131216, end: 20131218

REACTIONS (3)
  - Basilar artery thrombosis [Fatal]
  - Unresponsive to stimuli [Not Recovered/Not Resolved]
  - Cerebrovascular accident [Not Recovered/Not Resolved]
